FAERS Safety Report 26124892 (Version 1)
Quarter: 2025Q4

REPORT INFORMATION
  Report Type: Spontaneous
  Country: US (occurrence: US)
  Receive Date: 20251205
  Receipt Date: 20251205
  Transmission Date: 20260117
  Serious: No
  Sender: SANOFI AVENTIS
  Company Number: US-SA-2025SA362967

PATIENT
  Age: 1 Year
  Sex: Male

DRUGS (1)
  1. ALTUVIIIO [Suspect]
     Active Substance: EFANESOCTOCOG ALFA
     Indication: Factor VIII deficiency
     Dosage: 705 IU, PRN
     Route: 042
     Dates: start: 202508

REACTIONS (2)
  - Haemorrhage [Recovered/Resolved]
  - Haematoma [Unknown]
